FAERS Safety Report 5743689-7 (Version None)
Quarter: 2008Q2

REPORT INFORMATION
  Report Type: 
  Country: None (occurrence: None)
  Receive Date: 20080520
  Receipt Date: 20080514
  Transmission Date: 20081010
  Serious: Yes (Other)
  Sender: FDA-Public Use
  Company Number: UY-BAYER-200813579LA

PATIENT
  Age: 22 Year
  Sex: Female
  Weight: 49 kg

DRUGS (6)
  1. YASMIN [Suspect]
     Indication: ORAL CONTRACEPTION
     Route: 048
     Dates: start: 20050101, end: 20080401
  2. SAINT JOHN`S HERBAL [Interacting]
     Indication: DEPRESSION
     Route: 065
     Dates: start: 20080301
  3. ALPRAZOLAM [Concomitant]
     Indication: DEPRESSION
     Route: 065
  4. FLUOXETINE [Concomitant]
     Indication: DEPRESSION
     Route: 065
  5. FOLIC ACID [Concomitant]
     Indication: DRUG USE FOR UNKNOWN INDICATION
     Route: 065
  6. VITAMINS [Concomitant]
     Indication: DRUG USE FOR UNKNOWN INDICATION
     Route: 065

REACTIONS (4)
  - ABORTION SPONTANEOUS [None]
  - NAUSEA [None]
  - PREGNANCY ON ORAL CONTRACEPTIVE [None]
  - VOMITING [None]
